FAERS Safety Report 6922633-0 (Version None)
Quarter: 2010Q3

REPORT INFORMATION
  Report Type: 
  Country: None (occurrence: None)
  Receive Date: 20100813
  Receipt Date: 20100802
  Transmission Date: 20110219
  Serious: No
  Sender: FDA-Public Use
  Company Number: PHHY2010US42329

PATIENT
  Sex: Female

DRUGS (5)
  1. RECLAST [Suspect]
     Dosage: UNK
     Route: 042
     Dates: start: 20100622
  2. BYSTOLIC [Concomitant]
  3. BENAZEPRIL [Concomitant]
  4. LEVOTHYROXINE [Concomitant]
  5. CLONAZEPAM [Concomitant]

REACTIONS (2)
  - PHARYNGEAL OEDEMA [None]
  - SINUS OPERATION [None]
